FAERS Safety Report 4735053-4 (Version None)
Quarter: 2005Q3

REPORT INFORMATION
  Report Type: 
  Country: None (occurrence: None)
  Receive Date: 20050804
  Receipt Date: 20050720
  Transmission Date: 20060218
  Serious: Yes (Other)
  Sender: FDA-Public Use
  Company Number: US015646

PATIENT
  Age: 35 Year
  Sex: Female
  Weight: 69.8539 kg

DRUGS (14)
  1. TIAGABINE HCL [Suspect]
     Indication: GENERALISED ANXIETY DISORDER
     Dosage: 2 MG BID ORAL
     Route: 048
     Dates: start: 20050216, end: 20050222
  2. TIAGABINE HCL [Suspect]
     Indication: GENERALISED ANXIETY DISORDER
     Dosage: 4 MG BID ORAL
     Route: 048
     Dates: start: 20050223, end: 20050510
  3. TIAGABINE HCL [Suspect]
     Indication: GENERALISED ANXIETY DISORDER
     Dosage: 4 MG QAM ORAL
     Route: 048
     Dates: start: 20050511, end: 20050516
  4. TIAGABINE HCL [Suspect]
     Indication: GENERALISED ANXIETY DISORDER
     Dosage: 8 MG QPM ORAL
     Route: 048
     Dates: start: 20050511, end: 20050516
  5. TIAGABINE HCL [Suspect]
     Indication: GENERALISED ANXIETY DISORDER
     Dosage: 4 MG BID ORAL
     Route: 048
     Dates: start: 20050517, end: 20050718
  6. TIAGABINE HCL [Suspect]
     Indication: GENERALISED ANXIETY DISORDER
     Dosage: 2 MG QPM ORAL
     Route: 048
     Dates: start: 20050719, end: 20050719
  7. TIAGABINE HCL [Suspect]
     Indication: GENERALISED ANXIETY DISORDER
     Dosage: 2 MG BID ORAL
     Route: 048
     Dates: start: 20050720
  8. ASPIRIN [Concomitant]
  9. ZYRTEC [Concomitant]
  10. IBUPROFEN [Concomitant]
  11. ROLAIDS [Concomitant]
  12. BISMUTH SUBSALICYLATE [Concomitant]
  13. ACETAMINOPHEN [Concomitant]
  14. GINGER ROOT [Concomitant]

REACTIONS (12)
  - ANGER [None]
  - ANXIETY [None]
  - CENTRAL NERVOUS SYSTEM NEOPLASM [None]
  - EYES SUNKEN [None]
  - FATIGUE [None]
  - HEADACHE [None]
  - HOMICIDAL IDEATION [None]
  - INSOMNIA [None]
  - NAUSEA [None]
  - PARAESTHESIA [None]
  - PRURITUS [None]
  - WEIGHT DECREASED [None]
